FAERS Safety Report 11459162 (Version 1)
Quarter: 2015Q3

REPORT INFORMATION
  Report Type: Spontaneous
  Country: US (occurrence: US)
  Receive Date: 20150904
  Receipt Date: 20150904
  Transmission Date: 20151125
  Serious: No
  Sender: FDA-Public Use
  Company Number: US-PFIZER INC-2015292092

PATIENT
  Age: 77 Year
  Sex: Female
  Weight: 77 kg

DRUGS (6)
  1. REMICADE [Suspect]
     Active Substance: INFLIXIMAB
     Indication: RHEUMATOID ARTHRITIS
  2. XELJANZ [Suspect]
     Active Substance: TOFACITINIB CITRATE
     Indication: RHEUMATOID ARTHRITIS
     Dosage: 10 MG, DAILY (TWO 5 MG TABLETS A DAY )
     Route: 048
     Dates: start: 20150601, end: 20150824
  3. METHOTREXATE [Suspect]
     Active Substance: METHOTREXATE
     Indication: RHEUMATOID ARTHRITIS
     Dosage: 6 DF, WEEKLY (6 PILLS ONE DAY A WEEK)
     Route: 048
  4. METHOTREXATE [Suspect]
     Active Substance: METHOTREXATE
     Dosage: 5 MG, WEEKLY (TWO 2.5 MG PILLS ONE DAY A WEEK )
     Route: 048
     Dates: start: 2011, end: 20150824
  5. SIMPONI [Suspect]
     Active Substance: GOLIMUMAB
     Indication: RHEUMATOID ARTHRITIS
  6. ORENCIA [Suspect]
     Active Substance: ABATACEPT

REACTIONS (2)
  - Herpes simplex [Recovering/Resolving]
  - Oropharyngeal pain [Not Recovered/Not Resolved]

NARRATIVE: CASE EVENT DATE: 201505
